FAERS Safety Report 7349917-9 (Version None)
Quarter: 2011Q1

REPORT INFORMATION
  Report Type: 
  Country: None (occurrence: None)
  Receive Date: 20110309
  Receipt Date: 20110309
  Transmission Date: 20110831
  Serious: No
  Sender: FDA-Public Use
  Company Number: None

PATIENT
  Age: 49 Year
  Sex: Male

DRUGS (2)
  1. 55 [Suspect]
     Dates: start: 20090921, end: 20090922
  2. LEVAQUIN [Suspect]
     Dates: start: 20091001, end: 20091006

REACTIONS (11)
  - BLOOD BILIRUBIN INCREASED [None]
  - ASTHENIA [None]
  - HAEMATURIA [None]
  - BILIARY DILATATION [None]
  - CHILLS [None]
  - BLOOD ALKALINE PHOSPHATASE INCREASED [None]
  - INTUSSUSCEPTION [None]
  - ASPARTATE AMINOTRANSFERASE INCREASED [None]
  - PYREXIA [None]
  - LIVER INJURY [None]
  - ALANINE AMINOTRANSFERASE INCREASED [None]
